FAERS Safety Report 9335118 (Version 1)
Quarter: 2013Q2

REPORT INFORMATION
  Report Type: Other
  Country: DK (occurrence: IN)
  Receive Date: 20130606
  Receipt Date: 20130606
  Transmission Date: 20140414
  Serious: Yes (Other)
  Sender: FDA-Public Use
  Company Number: IN-FRI-1000045734

PATIENT
  Age: 53 Year
  Sex: Male

DRUGS (3)
  1. ESCITALOPRAM [Suspect]
  2. AMITRIPTYLINE [Suspect]
  3. CARBAMAZIPINE [Suspect]

REACTIONS (3)
  - Dementia [Recovering/Resolving]
  - Gait disturbance [Recovering/Resolving]
  - Lethargy [None]
